FAERS Safety Report 8135789-1 (Version None)
Quarter: 2012Q1

REPORT INFORMATION
  Report Type: 
  Country: None (occurrence: None)
  Receive Date: 20120214
  Receipt Date: 20120203
  Transmission Date: 20120608
  Serious: Yes (Hospitalization)
  Sender: FDA-Public Use
  Company Number: DE-ELI_LILLY_AND_COMPANY-DE201202001367

PATIENT
  Age: 61 Year
  Sex: Female
  Weight: 42 kg

DRUGS (3)
  1. FENTANYL [Concomitant]
  2. FORTEO [Suspect]
     Indication: OSTEOPOROSIS
     Dosage: UNK, QD
     Route: 058
     Dates: start: 20101029
  3. BOTOX [Concomitant]

REACTIONS (7)
  - SMALL INTESTINAL RESECTION [None]
  - WEIGHT DECREASED [None]
  - ARTIFICIAL BLADDER IMPLANTATION [None]
  - RADICAL CYSTECTOMY [None]
  - ASTHENIA [None]
  - NEPHRECTOMY [None]
  - ARTIFICIAL URINARY SPHINCTER IMPLANT [None]
